FAERS Safety Report 25685506 (Version 1)
Quarter: 2025Q3

REPORT INFORMATION
  Report Type: Spontaneous
  Country: US (occurrence: US)
  Receive Date: 20250815
  Receipt Date: 20250815
  Transmission Date: 20251021
  Serious: Yes (Other)
  Sender: PARI RESPIRATORY EQUIPMENT
  Company Number: US-PARI RESPIRATORY EQUIPMENT, INC.-2025PAR00037

PATIENT
  Age: 13 Year
  Sex: Female
  Weight: 65.488 kg

DRUGS (11)
  1. KITABIS PAK [Suspect]
     Active Substance: TOBRAMYCIN
     Indication: Cystic fibrosis
     Dosage: 300 MG (1 AMPULE) TWICE A DAY FOR 1 MONTH ON AND 1 MONTH OFF
     Dates: end: 202506
  2. KITABIS PAK [Suspect]
     Active Substance: TOBRAMYCIN
     Indication: Illness
     Dosage: 300 MG (1 AMPULE) TWICE A DAY FOR 1 MONTH ON AND 1 MONTH OFF
     Dates: start: 20250801
  3. PULMOZYME [Concomitant]
     Active Substance: DORNASE ALFA
  4. TOBRAMYCIN SULFATE [Concomitant]
     Active Substance: TOBRAMYCIN SULFATE
  5. AMOXICILLIN [Concomitant]
     Active Substance: AMOXICILLIN
  6. ALBUTEROL SULFATE [Concomitant]
     Active Substance: ALBUTEROL SULFATE
  7. FLOVENT HFA [Concomitant]
     Active Substance: FLUTICASONE PROPIONATE
  8. AZITHROMYCIN [Concomitant]
     Active Substance: AZITHROMYCIN
  9. VITAMIN D NOS [Concomitant]
     Active Substance: CHOLECALCIFEROL\ERGOCALCIFEROL
  10. VITAMINS NOS [Concomitant]
     Active Substance: VITAMINS
  11. CREON [Concomitant]
     Active Substance: PANCRELIPASE AMYLASE\PANCRELIPASE LIPASE\PANCRELIPASE PROTEASE

REACTIONS (2)
  - Pneumonia [Unknown]
  - Influenza [Unknown]

NARRATIVE: CASE EVENT DATE: 20250201
